FAERS Safety Report 5647932-4 (Version None)
Quarter: 2008Q1

REPORT INFORMATION
  Report Type: 
  Country: None (occurrence: None)
  Receive Date: 20080229
  Receipt Date: 20080221
  Transmission Date: 20080703
  Serious: Yes (Hospitalization)
  Sender: FDA-Public Use
  Company Number: 163-21880-07090383

PATIENT
  Age: 75 Year
  Sex: Female
  Weight: 57.1532 kg

DRUGS (13)
  1. REVLIMID [Suspect]
     Indication: MYELOPROLIFERATIVE DISORDER
     Dosage: QD, ORAL
     Route: 048
     Dates: start: 20070814, end: 20070828
  2. PREDNISONE TAB [Suspect]
     Indication: MYELOPROLIFERATIVE DISORDER
     Dates: start: 20070814, end: 20070828
  3. HYDREA [Concomitant]
  4. TRIAMTERENE (TRIAMTERENE) [Concomitant]
  5. PREMARIN [Concomitant]
  6. CALCIUM (CALCIUM) [Concomitant]
  7. MULTIVITAMIN [Concomitant]
  8. PROTONIX [Concomitant]
  9. MEGACE [Concomitant]
  10. ASPIRIN [Concomitant]
  11. COMPAZINE (PROCHLORPERAZINE EDISYLATE) [Concomitant]
  12. BENADRYL [Concomitant]
  13. ACETAMINOPHEN [Concomitant]

REACTIONS (5)
  - BLOOD ALBUMIN DECREASED [None]
  - BLOOD CALCIUM DECREASED [None]
  - PRESYNCOPE [None]
  - PROTEIN TOTAL DECREASED [None]
  - THROMBOCYTHAEMIA [None]
